FAERS Safety Report 16883593 (Version 1)
Quarter: 2019Q4

REPORT INFORMATION
  Report Type: Spontaneous
  Country: US (occurrence: US)
  Receive Date: 20191004
  Receipt Date: 20191004
  Transmission Date: 20200122
  Serious: Yes (Hospitalization)
  Sender: FDA-Public Use
  Company Number: US-009507513-1909USA015175

PATIENT
  Age: 1 Year
  Sex: Male

DRUGS (4)
  1. PROVENTIL [Suspect]
     Active Substance: ALBUTEROL
     Indication: DYSPNOEA
     Dosage: DOSAGE: AS NEEDED
     Dates: start: 201907, end: 201908
  2. ALBUTEROL SULFATE. [Suspect]
     Active Substance: ALBUTEROL SULFATE
     Indication: DYSPNOEA
     Dosage: DOSAGE: AS NEEDED
     Dates: start: 201907, end: 201908
  3. ALBUTEROL SULFATE. [Suspect]
     Active Substance: ALBUTEROL SULFATE
     Indication: NASOPHARYNGITIS
  4. PROVENTIL [Suspect]
     Active Substance: ALBUTEROL
     Indication: NASOPHARYNGITIS

REACTIONS (4)
  - Poor quality device used [Unknown]
  - Nasopharyngitis [Recovered/Resolved]
  - Product dose omission [Unknown]
  - Product quality issue [Unknown]

NARRATIVE: CASE EVENT DATE: 201907
